FAERS Safety Report 12047131 (Version 1)
Quarter: 2016Q1

REPORT INFORMATION
  Report Type: Spontaneous
  Country: ES (occurrence: ES)
  Receive Date: 20160209
  Receipt Date: 20160209
  Transmission Date: 20160526
  Serious: Yes (Other)
  Sender: FDA-Public Use
  Company Number: ES-IPSEN BIOPHARMACEUTICALS, INC.-2016-00749

PATIENT

DRUGS (2)
  1. INCRELEX [Suspect]
     Active Substance: MECASERMIN
     Indication: PRODUCT USE ISSUE
  2. INCRELEX [Suspect]
     Active Substance: MECASERMIN
     Indication: SPINOCEREBELLAR ATAXIA
     Route: 058

REACTIONS (2)
  - Hypoglycaemia [Unknown]
  - Fracture [Unknown]
